FAERS Safety Report 8412013-3 (Version None)
Quarter: 2012Q2

REPORT INFORMATION
  Report Type: 
  Country: None (occurrence: None)
  Receive Date: 20120605
  Receipt Date: 20120525
  Transmission Date: 20120825
  Serious: No
  Sender: FDA-Public Use
  Company Number: US-PFIZER INC-2012127026

PATIENT
  Sex: Female
  Weight: 65.306 kg

DRUGS (9)
  1. PRISTIQ [Interacting]
     Indication: DEPRESSION
     Dosage: 50 MG, 1X/DAY
     Route: 048
     Dates: start: 20120524, end: 20120525
  2. PRISTIQ [Interacting]
     Indication: STRESS
  3. AMBIEN [Interacting]
     Indication: INSOMNIA
  4. SINGULAIR [Concomitant]
     Indication: ASTHMA
     Dosage: 10 MG, 1X/DAY
  5. NORVASC [Concomitant]
     Indication: HYPERTENSION
     Dosage: 5 MG, 1X/DAY
  6. FLOVENT [Concomitant]
     Indication: ASTHMA
     Dosage: 44 UG, 2X/DAY
  7. XYZAL [Suspect]
     Indication: HYPERSENSITIVITY
     Dosage: 5 MG, AS NEEDED
  8. AMBIEN [Interacting]
     Indication: SLEEP DISORDER
     Dosage: UNK, DAILY
     Route: 048
  9. FOLVITE [Concomitant]
     Dosage: 50 UG, 2X/DAY

REACTIONS (3)
  - FATIGUE [None]
  - DRUG INTERACTION [None]
  - SOMNOLENCE [None]
